FAERS Safety Report 4514079-X (Version None)
Quarter: 2004Q4

REPORT INFORMATION
  Report Type: 
  Country: None (occurrence: None)
  Receive Date: 20041130
  Receipt Date: 20041104
  Transmission Date: 20050328
  Serious: Yes (Hospitalization)
  Sender: FDA-Public Use
  Company Number: DE-GLAXOSMITHKLINE-D0045109A

PATIENT
  Age: 44 Year
  Sex: Male
  Weight: 68 kg

DRUGS (3)
  1. VIANI [Suspect]
     Dosage: 550UG TWICE PER DAY
     Route: 055
     Dates: start: 20040801, end: 20041001
  2. SPIRIVA [Concomitant]
     Dosage: 18UG PER DAY
     Route: 055
  3. BERODUAL DOSIER-AEROSOL [Concomitant]
     Dosage: .07MG AS REQUIRED
     Route: 055

REACTIONS (9)
  - CHOLESTASIS [None]
  - CONSTIPATION [None]
  - GASTROINTESTINAL PAIN [None]
  - JAUNDICE [None]
  - NAUSEA [None]
  - OCULAR ICTERUS [None]
  - PRURITUS [None]
  - SKIN DISCOLOURATION [None]
  - VOMITING [None]
